FAERS Safety Report 8667475 (Version 2)
Quarter: 2012Q4

REPORT INFORMATION
  Report Type: Report from Study
  Country: JP (occurrence: JP)
  Receive Date: 20120717
  Receipt Date: 20120928
  Transmission Date: 20130627
  Serious: Yes (Other)
  Sender: FDA-Public Use
  Company Number: JP-009507513-1206USA03036

PATIENT
  Age: 85 Year
  Sex: Female

DRUGS (6)
  1. TAFLUPROST [Suspect]
     Indication: OPEN ANGLE GLAUCOMA
     Dosage: 2 drops, qd
     Route: 047
     Dates: start: 20090803, end: 20110601
  2. DORZOLAMIDE HYDROCHLORIDE [Concomitant]
     Dates: end: 20090803
  3. TIMOLOL MALEATE [Concomitant]
  4. HYALURONATE SODIUM [Concomitant]
     Dates: end: 20100105
  5. MECOBALAMIN [Concomitant]
     Dates: start: 20100202
  6. NEOSTIGMINE METHYLSULFATE [Concomitant]
     Dates: start: 20100426, end: 20100518

REACTIONS (2)
  - Visual field defect [Unknown]
  - Visual acuity reduced [Unknown]
